FAERS Safety Report 6871490-X (Version None)
Quarter: 2010Q3

REPORT INFORMATION
  Report Type: 
  Country: None (occurrence: None)
  Receive Date: 20100723
  Receipt Date: 20100720
  Transmission Date: 20110219
  Serious: Yes (Life-Threatening)
  Sender: FDA-Public Use
  Company Number: FR-MERCK-1007FRA00084

PATIENT
  Age: 57 Year
  Sex: Male

DRUGS (6)
  1. ZETIA [Suspect]
     Indication: DYSLIPIDAEMIA
     Route: 048
     Dates: start: 20090101, end: 20100622
  2. MYCOPHENOLATE MOFETIL [Suspect]
     Indication: RENAL TRANSPLANT
     Route: 048
     Dates: start: 20061001, end: 20100622
  3. TACROLIMUS [Concomitant]
     Route: 048
  4. IRBESARTAN [Suspect]
     Indication: HYPERTENSION
     Route: 048
     Dates: end: 20100622
  5. FOLIC ACID [Concomitant]
     Route: 048
     Dates: end: 20100101
  6. BROMAZEPAM [Concomitant]
     Route: 048
     Dates: start: 20100605, end: 20100605

REACTIONS (1)
  - AGRANULOCYTOSIS [None]
